FAERS Safety Report 13389044 (Version 2)
Quarter: 2017Q2

REPORT INFORMATION
  Report Type: Spontaneous
  Country: TR (occurrence: TR)
  Receive Date: 20170330
  Receipt Date: 20170622
  Transmission Date: 20170830
  Serious: Yes (Other)
  Sender: FDA-Public Use
  Company Number: TR-UCBSA-2017011979

PATIENT
  Sex: Female

DRUGS (1)
  1. CIMZIA [Suspect]
     Active Substance: CERTOLIZUMAB PEGOL
     Indication: ANKYLOSING SPONDYLITIS
     Dosage: UNK
     Dates: start: 201507, end: 201608

REACTIONS (5)
  - Twin pregnancy [Recovered/Resolved]
  - Pregnancy [Unknown]
  - Premature delivery [Unknown]
  - Breast feeding [Unknown]
  - Tuberculosis [Unknown]

NARRATIVE: CASE EVENT DATE: 20160223
